FAERS Safety Report 21296197 (Version 1)
Quarter: 2022Q3

REPORT INFORMATION
  Report Type: Spontaneous
  Country: ES (occurrence: None)
  Receive Date: 20220906
  Receipt Date: 20220906
  Transmission Date: 20221027
  Serious: Yes (Other)
  Sender: FDA-Public Use
  Company Number: ES-ROCHE-3166757

PATIENT
  Sex: Male

DRUGS (2)
  1. TECFIDERA [Suspect]
     Active Substance: DIMETHYL FUMARATE
     Indication: Relapsing-remitting multiple sclerosis
     Route: 065
  2. RITUXAN [Suspect]
     Active Substance: RITUXIMAB
     Indication: Product used for unknown indication
     Route: 065

REACTIONS (10)
  - Lymphopenia [Unknown]
  - Disability [Unknown]
  - Multiple sclerosis [Unknown]
  - Myelopathy [Unknown]
  - Muscle spasticity [Unknown]
  - Pyrexia [Unknown]
  - General symptom [Unknown]
  - Initial insomnia [Unknown]
  - Ill-defined disorder [Unknown]
  - Mental disorder [Unknown]
